FAERS Safety Report 8428453-2 (Version None)
Quarter: 2012Q2

REPORT INFORMATION
  Report Type: 
  Country: None (occurrence: None)
  Receive Date: 20120612
  Receipt Date: 20120605
  Transmission Date: 20120825
  Serious: No
  Sender: FDA-Public Use
  Company Number: US-BIOGENIDEC-2012BI019790

PATIENT
  Sex: Female

DRUGS (1)
  1. AVONEX [Suspect]
     Indication: MULTIPLE SCLEROSIS
     Route: 030

REACTIONS (6)
  - AGGRESSION [None]
  - SCHIZOPHRENIFORM DISORDER [None]
  - ADJUSTMENT DISORDER [None]
  - BIPOLAR DISORDER [None]
  - DIABETES MELLITUS [None]
  - ANGER [None]
